FAERS Safety Report 8384990 (Version 3)
Quarter: 2012Q4

REPORT INFORMATION
  Report Type: 
  Country: US (occurrence: US)
  Receive Date: 20120202
  Receipt Date: 20121024
  Transmission Date: 20130627
  Serious: Yes (Other)
  Sender: FDA-Public Use
  Company Number: US-ELI_LILLY_AND_COMPANY-US201201008100

PATIENT
  Sex: Female
  Weight: 87.08 kg

DRUGS (9)
  1. FORTEO [Suspect]
     Indication: OSTEOPOROSIS
     Dosage: 20 ug, qd
     Route: 058
     Dates: start: 20111229
  2. FORTEO [Suspect]
     Dosage: 20 ug, qd
  3. GEMFIBROZIL [Concomitant]
  4. DIGOXIN [Concomitant]
  5. OMEPRAZOLE [Concomitant]
  6. CALCIUM [Concomitant]
  7. VITAMIN D NOS [Concomitant]
  8. TRIGOSAMINE [Concomitant]
  9. MULTIVITAMIN [Concomitant]

REACTIONS (3)
  - Retinal ischaemia [Unknown]
  - Diplopia [Unknown]
  - Underdose [Unknown]
